FAERS Safety Report 23743673 (Version 1)
Quarter: 2024Q2

REPORT INFORMATION
  Report Type: Spontaneous
  Country: CA (occurrence: CA)
  Receive Date: 20240415
  Receipt Date: 20240415
  Transmission Date: 20240715
  Serious: Yes (Life-Threatening, Hospitalization)
  Sender: FDA-Public Use
  Company Number: CA-SANDOZ-SDZ2024CA038381

PATIENT
  Age: 70 Year
  Sex: Female

DRUGS (1)
  1. CEFTRIAXONE [Suspect]
     Active Substance: CEFTRIAXONE\CEFTRIAXONE SODIUM
     Indication: Capnocytophaga infection
     Dosage: UNK
     Route: 065

REACTIONS (1)
  - Drug ineffective [Unknown]
